FAERS Safety Report 25933807 (Version 1)
Quarter: 2025Q4

REPORT INFORMATION
  Report Type: Spontaneous
  Country: IN (occurrence: IN)
  Receive Date: 20251017
  Receipt Date: 20251017
  Transmission Date: 20260118
  Serious: Yes (Hospitalization, Other)
  Sender: ZYDUS PHARM
  Company Number: IN-ZYDUS-IN-ZYDUS-129516

PATIENT

DRUGS (6)
  1. CYCLOPHOSPHAMIDE [Suspect]
     Active Substance: CYCLOPHOSPHAMIDE
     Indication: Immunosuppression
     Dosage: 900 MILLIGRAM, 15 MG/KG
     Route: 065
  2. DEXAMETHASONE [Concomitant]
     Active Substance: DEXAMETHASONE
     Indication: Product used for unknown indication
     Dosage: UNK, BID
     Route: 065
  3. VITAMIN E [Concomitant]
     Active Substance: .ALPHA.-TOCOPHEROL
     Indication: Product used for unknown indication
     Dosage: UNK
     Route: 065
  4. HEPARIN [Concomitant]
     Active Substance: HEPARIN SODIUM
     Indication: Product used for unknown indication
     Dosage: UNK
     Route: 065
  5. PREDNISOLONE [Concomitant]
     Active Substance: PREDNISOLONE
     Indication: Product used for unknown indication
     Dosage: UNK
     Route: 048
  6. PREDNISOLONE [Concomitant]
     Active Substance: PREDNISOLONE
     Dosage: UNK, TAPERED
     Route: 048

REACTIONS (4)
  - Gastrointestinal disorder [Recovering/Resolving]
  - Renal failure [Recovering/Resolving]
  - Hepatic failure [Recovering/Resolving]
  - Overdose [Unknown]
